FAERS Safety Report 10196323 (Version 4)
Quarter: 2014Q3

REPORT INFORMATION
  Report Type: Spontaneous
  Country: US (occurrence: None)
  Receive Date: 20140522
  Receipt Date: 20140718
  Transmission Date: 20150326
  Serious: Yes (Other)
  Sender: FDA-Public Use
  Company Number: ADR-2013-02060

PATIENT
  Age: 15 Year
  Sex: Female

DRUGS (4)
  1. TRILEPTAL [Suspect]
     Active Substance: OXCARBAZEPINE
  2. LIORESAL [Suspect]
     Active Substance: BACLOFEN
     Indication: MUSCLE SPASTICITY
  3. KEPPRA [Suspect]
     Active Substance: LEVETIRACETAM
  4. ROBINUL [Suspect]
     Active Substance: GLYCOPYRROLATE

REACTIONS (15)
  - Muscle twitching [None]
  - Withdrawal syndrome [None]
  - Speech disorder [None]
  - Device breakage [None]
  - Device issue [None]
  - Convulsion [None]
  - Dyspnoea [None]
  - Device physical property issue [None]
  - Device kink [None]
  - Device occlusion [None]
  - Device damage [None]
  - Drug withdrawal syndrome [None]
  - Muscle tightness [None]
  - Facial asymmetry [None]
  - Hypotonia [None]
